FAERS Safety Report 6077973-7 (Version None)
Quarter: 2009Q1

REPORT INFORMATION
  Report Type: 
  Country: None (occurrence: None)
  Receive Date: 20090210
  Receipt Date: 20090127
  Transmission Date: 20090719
  Serious: Yes (Death, Hospitalization)
  Sender: FDA-Public Use
  Company Number: DSA_32925_2008

PATIENT
  Sex: Male

DRUGS (14)
  1. XENAZINE (XENAZINA - TETRABENAZINE) (NOT SPECIFIED) [Suspect]
     Indication: HUNTINGTON'S CHOREA
     Dosage: (37.5 MG QD)
     Dates: start: 20081115, end: 20081117
  2. SERENASE /00027401/ [Concomitant]
  3. ROCEPHIN [Concomitant]
  4. PERFALGAN [Concomitant]
  5. LOSEC /00661201/ [Concomitant]
  6. INEXIUM /01479302/ [Concomitant]
  7. LANSOX [Concomitant]
  8. MINITRAN /00003201/ [Concomitant]
  9. SELEPARINA /00889603/ [Concomitant]
  10. CLENIL-A [Concomitant]
  11. BRONCOVALEAS /00139501/ [Concomitant]
  12. DEXTROSE 5% [Concomitant]
  13. ISOPURAMIN NOVUM [Concomitant]
  14. LIPOVENOES /00272201/ [Concomitant]

REACTIONS (7)
  - ACUTE MYELOID LEUKAEMIA RECURRENT [None]
  - BLOOD GLUCOSE INCREASED [None]
  - BLOOD SODIUM DECREASED [None]
  - BLOOD UREA INCREASED [None]
  - BLOOD URIC ACID DECREASED [None]
  - OESOPHAGITIS [None]
  - SEPSIS [None]
